FAERS Safety Report 24621251 (Version 2)
Quarter: 2025Q1

REPORT INFORMATION
  Report Type: Spontaneous
  Country: US (occurrence: US)
  Receive Date: 20241114
  Receipt Date: 20250103
  Transmission Date: 20250408
  Serious: No
  Sender: MERCK
  Company Number: US-009507513-2410USA013722

PATIENT
  Age: 48 Year
  Sex: Female

DRUGS (3)
  1. KEYTRUDA [Suspect]
     Active Substance: PEMBROLIZUMAB
     Indication: Colorectal cancer metastatic
  2. OLAPARIB [Suspect]
     Active Substance: OLAPARIB
     Indication: Colorectal cancer metastatic
  3. PACLITAXEL [Suspect]
     Active Substance: PACLITAXEL
     Indication: Colorectal cancer metastatic

REACTIONS (1)
  - Off label use [Unknown]
